FAERS Safety Report 5255519-0 (Version None)
Quarter: 2007Q1

REPORT INFORMATION
  Report Type: 
  Country: None (occurrence: None)
  Receive Date: 20070305
  Receipt Date: 20070221
  Transmission Date: 20070707
  Serious: Yes (Life-Threatening, Hospitalization)
  Sender: FDA-Public Use
  Company Number: US-SHR-US-2006-027377

PATIENT
  Age: 57 Year
  Sex: Female
  Weight: 144 kg

DRUGS (11)
  1. ULTRAVIST 300 [Suspect]
     Indication: COMPUTERISED TOMOGRAM ABDOMEN
     Dosage: 150 ML, 1 DOSE
     Route: 042
     Dates: start: 20060918, end: 20060918
  2. BARIUM SULFATE [Concomitant]
     Route: 048
     Dates: start: 20060918, end: 20060918
  3. ALBUTEROL [Concomitant]
     Dosage: UNK, AS REQ'D
  4. NITROGLYCERIN [Concomitant]
     Dosage: .4 MG, AS REQ'D
  5. ONDANSETRON [Concomitant]
     Dosage: 4 MG, AS REQ'D
  6. NOVOLIN 50/50 [Concomitant]
     Dosage: 1 IU, AS REQ'D
  7. ^NAPERIDINE^ [Concomitant]
     Dosage: 25 MG, AS REQ'D
  8. SERTRALINE [Concomitant]
     Dosage: 100 MG, UNK
  9. CARISOPRODOL [Concomitant]
     Dosage: 350 MG, AS REQ'D
  10. ALPRAZOLAM [Concomitant]
     Dosage: .5 MG, AS REQ'D
  11. IMDUR [Concomitant]

REACTIONS (7)
  - ASPIRATION [None]
  - CARDIAC FAILURE CONGESTIVE [None]
  - CONVULSION [None]
  - DYSPNOEA [None]
  - PNEUMONIA ASPIRATION [None]
  - VENTRICULAR FIBRILLATION [None]
  - VENTRICULAR TACHYCARDIA [None]
